FAERS Safety Report 24179293 (Version 1)
Quarter: 2024Q3

REPORT INFORMATION
  Report Type: Spontaneous
  Country: DK (occurrence: DK)
  Receive Date: 20240806
  Receipt Date: 20240806
  Transmission Date: 20241016
  Serious: Yes (Hospitalization, Other)
  Sender: VERTEX
  Company Number: None

PATIENT
  Age: 11 Year
  Sex: Male
  Weight: 30 kg

DRUGS (8)
  1. ELEXACAFTOR\IVACAFTOR\TEZACAFTOR [Interacting]
     Active Substance: ELEXACAFTOR\IVACAFTOR\TEZACAFTOR
     Indication: Cystic fibrosis
     Dosage: 75 MG IVACAFTOR/ 50 MG TEZACAFTOR/ 100MG ELEXACAFTOR
     Route: 048
     Dates: start: 20220211, end: 20240415
  2. FUSIDATE SODIUM [Interacting]
     Active Substance: FUSIDATE SODIUM
     Indication: Pneumonia staphylococcal
     Dosage: 500 MILLIGRAM (0.5/ DAY)
     Route: 048
     Dates: start: 20240326, end: 20240408
  3. CREON [Concomitant]
     Active Substance: PANCRELIPASE AMYLASE\PANCRELIPASE LIPASE\PANCRELIPASE PROTEASE
     Indication: Pancreatic failure
     Dosage: 10 CAPSULES PER MEAL
     Dates: start: 2017
  4. BECLOMETHASONE DIPROPIONATE [Concomitant]
     Active Substance: BECLOMETHASONE DIPROPIONATE
     Indication: Asthma
     Dosage: 200 MICROGRAM, QD
     Dates: start: 2021
  5. INNOVAIR [Concomitant]
     Active Substance: BECLOMETHASONE DIPROPIONATE\FORMOTEROL
     Indication: Asthma
     Dosage: 1 DOSAGE FORM, QD
     Dates: start: 20230805
  6. PULMOZYME [Concomitant]
     Active Substance: DORNASE ALFA
     Indication: Mucolytic treatment
     Dosage: UNK
     Dates: start: 2017
  7. FLUTICASONE FUROATE [Concomitant]
     Active Substance: FLUTICASONE FUROATE
     Indication: Seasonal allergy
     Dosage: 55 MICROGRAM (0.5/ DAY)
     Route: 045
     Dates: start: 2019
  8. MONTELUKAST [Concomitant]
     Active Substance: MONTELUKAST SODIUM
     Indication: Asthma
     Dosage: STRENGTH: 5 MG.
     Dates: start: 2020

REACTIONS (7)
  - Drug interaction [Unknown]
  - Status epilepticus [Recovered/Resolved]
  - Altered state of consciousness [Recovering/Resolving]
  - Idiopathic intracranial hypertension [Recovering/Resolving]
  - Papilloedema [Recovering/Resolving]
  - Vomiting [Recovering/Resolving]
  - Headache [Recovering/Resolving]

NARRATIVE: CASE EVENT DATE: 20240404
